FAERS Safety Report 6620207-2 (Version None)
Quarter: 2010Q1

REPORT INFORMATION
  Report Type: 
  Country: None (occurrence: None)
  Receive Date: 20100309
  Receipt Date: 20100301
  Transmission Date: 20100710
  Serious: Yes (Life-Threatening, Hospitalization)
  Sender: FDA-Public Use
  Company Number: FR-TEVA-226429ISR

PATIENT
  Age: 76 Year
  Sex: Male

DRUGS (3)
  1. AZILECT [Suspect]
     Indication: PARKINSON'S DISEASE
     Route: 048
     Dates: start: 20100126, end: 20100205
  2. SINEMET [Concomitant]
     Indication: PARKINSON'S DISEASE
     Route: 048
     Dates: start: 20060101
  3. UDRAMIL [Concomitant]
     Indication: HYPERTENSION

REACTIONS (2)
  - DOPAMINE DYSREGULATION SYNDROME [None]
  - INTESTINAL INFARCTION [None]
